FAERS Safety Report 5248093-6 (Version None)
Quarter: 2007Q1

REPORT INFORMATION
  Report Type: 
  Country: None (occurrence: None)
  Receive Date: 20070227
  Receipt Date: 20070226
  Transmission Date: 20070707
  Serious: Yes (Other)
  Sender: FDA-Public Use
  Company Number: US-GLAXOSMITHKLINE-A0640847A

PATIENT
  Sex: Male

DRUGS (4)
  1. LAMICTAL [Suspect]
     Indication: EPILEPSY
     Route: 048
  2. RISPERDAL [Suspect]
     Route: 048
  3. DEPAKOTE [Suspect]
     Indication: EPILEPSY
     Route: 048
  4. CONCERTA [Concomitant]
     Indication: ATTENTION DEFICIT/HYPERACTIVITY DISORDER
     Route: 048

REACTIONS (5)
  - AGGRESSION [None]
  - DEPRESSION [None]
  - GRAND MAL CONVULSION [None]
  - MANIA [None]
  - MOOD ALTERED [None]
